FAERS Safety Report 9132749 (Version 2)
Quarter: 2013Q2

REPORT INFORMATION
  Report Type: Report from Study
  Country: JP (occurrence: JP)
  Receive Date: 20130301
  Receipt Date: 20130424
  Transmission Date: 20140414
  Serious: Yes (Other)
  Sender: FDA-Public Use
  Company Number: JP-ROCHE-1196524

PATIENT
  Age: 80 Year
  Sex: Male

DRUGS (8)
  1. METHOXY POLYETHYLENE GLYCOL-EPOETIN BETA [Suspect]
     Indication: NEPHROGENIC ANAEMIA
     Route: 042
     Dates: start: 20120221, end: 20120522
  2. CALTAN [Concomitant]
     Indication: GLOMERULONEPHRITIS CHRONIC
     Route: 048
  3. APLACE [Concomitant]
     Route: 048
  4. DIOVAN [Concomitant]
     Route: 048
  5. NORVASC [Concomitant]
     Route: 048
     Dates: start: 20120515
  6. LAC-B [Concomitant]
     Indication: GLOMERULONEPHRITIS CHRONIC
     Route: 048
  7. TAKEPRON [Concomitant]
     Route: 048
     Dates: start: 20111220, end: 20120710
  8. AMLODIN [Concomitant]
     Dosage: NON-DIALYSIS DAY
     Route: 048
     Dates: end: 20120515

REACTIONS (1)
  - Anaemia [Recovered/Resolved]
